FAERS Safety Report 16035892 (Version 4)
Quarter: 2019Q3

REPORT INFORMATION
  Report Type: Spontaneous
  Country: JP (occurrence: JP)
  Receive Date: 20190305
  Receipt Date: 20190723
  Transmission Date: 20191004
  Serious: Yes (Other)
  Sender: FDA-Public Use
  Company Number: JP-PFIZER INC-2019092210

PATIENT
  Age: 86 Year
  Sex: Male
  Weight: 55 kg

DRUGS (3)
  1. FUNGUARD [Concomitant]
     Active Substance: MICAFUNGIN SODIUM
     Indication: BACTERAEMIA
     Dosage: 150 MG, 1X/DAY
     Route: 042
     Dates: start: 20190211, end: 20190214
  2. AMBISOME [Concomitant]
     Active Substance: AMPHOTERICIN B
     Indication: BACTERAEMIA
     Dosage: 200 MG, 1X/DAY
     Route: 042
     Dates: start: 20190119, end: 20190131
  3. DIFLUCAN [Suspect]
     Active Substance: FLUCONAZOLE
     Indication: BACTERAEMIA
     Dosage: 100 MG, 3X/DAY
     Route: 048
     Dates: start: 20190215, end: 20190303

REACTIONS (3)
  - Arrhythmia [Recovered/Resolved]
  - Electrocardiogram QT prolonged [Recovering/Resolving]
  - Bundle branch block right [Unknown]

NARRATIVE: CASE EVENT DATE: 20190228
